FAERS Safety Report 7214080-1 (Version None)
Quarter: 2011Q1

REPORT INFORMATION
  Report Type: 
  Country: None (occurrence: None)
  Receive Date: 20110107
  Receipt Date: 20110104
  Transmission Date: 20110831
  Serious: Yes (Hospitalization)
  Sender: FDA-Public Use
  Company Number: IT-AMGEN-ITASP2010007634

PATIENT

DRUGS (6)
  1. VOLTAREN [Concomitant]
     Dosage: 50 MG, UNK
     Route: 048
  2. ANTRA [Concomitant]
     Dosage: 20 MG, UNK
     Route: 048
  3. ACTONEL [Concomitant]
     Dosage: 35 MG, UNK
     Route: 048
  4. MEDROL [Concomitant]
     Dosage: 8 MG, UNK
     Route: 048
  5. METOCAL VITAMINA D3 [Concomitant]
     Dosage: 1200 MG, UNK
     Route: 048
  6. ENBREL [Suspect]
     Indication: RHEUMATOID ARTHRITIS
     Dosage: 50 MG, WEEKLY
     Route: 058
     Dates: start: 20050601, end: 20101028

REACTIONS (5)
  - ADRENAL GLAND CANCER METASTATIC [None]
  - HEPATIC CANCER METASTATIC [None]
  - SQUAMOUS CELL CARCINOMA [None]
  - METASTASES TO SPINE [None]
  - METASTASES TO THE MEDIASTINUM [None]
